FAERS Safety Report 5988802-1 (Version None)
Quarter: 2008Q4

REPORT INFORMATION
  Report Type: 
  Country: None (occurrence: None)
  Receive Date: 20081208
  Receipt Date: 20081208
  Transmission Date: 20090506
  Serious: No
  Sender: FDA-Public Use
  Company Number: None

PATIENT
  Sex: Male
  Weight: 88.4514 kg

DRUGS (5)
  1. PREDNISONE TAB [Suspect]
     Indication: MULTIPLE ALLERGIES
     Dosage: 20 EVERY DAY PO
     Route: 048
     Dates: start: 20080909, end: 20080916
  2. LEVAQUIN [Suspect]
     Indication: BACTERIAL INFECTION
     Dosage: 14 EVERY DAY PO
     Route: 048
     Dates: start: 20081010, end: 20081017
  3. LEXAPRO [Concomitant]
  4. XANAX [Concomitant]
  5. AMIBIEM -AMBIEN- [Concomitant]

REACTIONS (6)
  - DEPRESSION [None]
  - DISTURBANCE IN ATTENTION [None]
  - GAIT DISTURBANCE [None]
  - HYPERSOMNIA [None]
  - ILL-DEFINED DISORDER [None]
  - MUSCLE TIGHTNESS [None]
